FAERS Safety Report 4960649-4 (Version None)
Quarter: 2006Q2

REPORT INFORMATION
  Report Type: 
  Country: None (occurrence: None)
  Receive Date: 20060403
  Receipt Date: 20050930
  Transmission Date: 20061013
  Serious: Yes (Hospitalization, Disabling)
  Sender: FDA-Public Use
  Company Number: US-MERCK-0510USA02078

PATIENT
  Age: 55 Year
  Sex: Female
  Weight: 70 kg

DRUGS (2)
  1. VIOXX [Suspect]
     Indication: ARTHRITIS
     Route: 048
     Dates: start: 19990101, end: 20040101
  2. TYLENOL (CAPLET) [Concomitant]
     Route: 065

REACTIONS (15)
  - ABDOMINAL PAIN UPPER [None]
  - BLEEDING TIME PROLONGED [None]
  - DEEP VEIN THROMBOSIS [None]
  - DYSPEPSIA [None]
  - FAECES DISCOLOURED [None]
  - LIMB MALFORMATION [None]
  - MELAENA [None]
  - PAIN IN EXTREMITY [None]
  - PARAESTHESIA [None]
  - PRURITUS [None]
  - PULMONARY EMBOLISM [None]
  - PYREXIA [None]
  - RENAL EMBOLISM [None]
  - THROMBOSIS [None]
  - URINARY TRACT INFECTION [None]
